FAERS Safety Report 19926043 (Version 3)
Quarter: 2022Q1

REPORT INFORMATION
  Report Type: Spontaneous
  Country: JP (occurrence: JP)
  Receive Date: 20211006
  Receipt Date: 20220120
  Transmission Date: 20220423
  Serious: Yes (Other)
  Sender: FDA-Public Use
  Company Number: JP-GSKJP-JP2021JPN205005

PATIENT
  Sex: Male

DRUGS (3)
  1. BOTOX [Suspect]
     Active Substance: ONABOTULINUMTOXINA
     Indication: Talipes
     Dosage: 400 UNITS, SINGLE
     Dates: start: 20210209, end: 20210209
  2. BOTOX [Suspect]
     Active Substance: ONABOTULINUMTOXINA
     Indication: Muscle spasticity
     Dosage: 400 UNITS, SINGLE
     Dates: start: 20210413, end: 20210413
  3. BOTOX [Suspect]
     Active Substance: ONABOTULINUMTOXINA
     Indication: Muscle spasticity
     Dosage: 200 UNITS, SINGLE
     Dates: start: 20211005, end: 20211005

REACTIONS (8)
  - Talipes [Unknown]
  - Gait disturbance [Recovered/Resolved with Sequelae]
  - Off label use [Unknown]
  - Grip strength decreased [Unknown]
  - Muscle spasms [Unknown]
  - Muscle tightness [Unknown]
  - Injection site muscle weakness [Recovered/Resolved]
  - Asthenia [Unknown]

NARRATIVE: CASE EVENT DATE: 20210101
